FAERS Safety Report 7792319-1 (Version None)
Quarter: 2011Q4

REPORT INFORMATION
  Report Type: 
  Country: None (occurrence: None)
  Receive Date: 20111003
  Receipt Date: 20110926
  Transmission Date: 20120403
  Serious: Yes (Death, Hospitalization, Other)
  Sender: FDA-Public Use
  Company Number: PHHY2011CN85407

PATIENT
  Age: 31 Year
  Sex: Male

DRUGS (5)
  1. GLEEVEC [Suspect]
     Indication: CHRONIC MYELOID LEUKAEMIA
     Dosage: 400 MG, DAILY
     Route: 048
     Dates: start: 20110314
  2. MITOXANTRONE [Concomitant]
     Dosage: 12 MG, DAILY
     Route: 042
     Dates: start: 20110811, end: 20110813
  3. VINCRISTINE [Concomitant]
     Dosage: 2 MG, DAILY
     Route: 042
     Dates: start: 20110811, end: 20110813
  4. CYTARABINE [Concomitant]
     Dosage: 1.5 UKN, UNK
     Route: 042
     Dates: end: 20110905
  5. DEXAMETHASONE [Concomitant]
     Dosage: 15 MG, DAILY
     Route: 042
     Dates: start: 20110811, end: 20110821

REACTIONS (14)
  - CHRONIC MYELOID LEUKAEMIA TRANSFORMATION [None]
  - METASTASES TO CENTRAL NERVOUS SYSTEM [None]
  - BONE MARROW FAILURE [None]
  - CEREBRAL HAEMORRHAGE [None]
  - LOSS OF CONSCIOUSNESS [None]
  - PLATELET COUNT DECREASED [None]
  - ACUTE MYELOMONOCYTIC LEUKAEMIA [None]
  - GENE MUTATION IDENTIFICATION TEST POSITIVE [None]
  - BLAST CRISIS IN MYELOGENOUS LEUKAEMIA [None]
  - DIZZINESS [None]
  - HYPOAESTHESIA [None]
  - HEMIPLEGIA [None]
  - VISION BLURRED [None]
  - DYSPNOEA [None]
